FAERS Safety Report 9159149 (Version 1)
Quarter: 2013Q1

REPORT INFORMATION
  Report Type: Spontaneous
  Country: US (occurrence: None)
  Receive Date: 20130212
  Receipt Date: 20130212
  Transmission Date: 20140127
  Serious: Yes (Hospitalization, Other)
  Sender: FDA-Public Use
  Company Number: ADR-2013-00208

PATIENT
  Age: 32 Year
  Sex: Female

DRUGS (1)
  1. LIORESAL [Suspect]
     Indication: CANCER PAIN

REACTIONS (2)
  - Meningitis [None]
  - Implant site discharge [None]
